FAERS Safety Report 9833523 (Version 2)
Quarter: 2014Q2

REPORT INFORMATION
  Report Type: Report from Study
  Country: US (occurrence: US)
  Receive Date: 20140122
  Receipt Date: 20140620
  Transmission Date: 20141212
  Serious: Yes (Hospitalization)
  Sender: FDA-Public Use
  Company Number: US-ROCHE-1335757

PATIENT
  Age: 45 Year
  Sex: Female

DRUGS (14)
  1. XOLAIR [Suspect]
     Indication: ASTHMA
     Dosage: MOST RECENT DOSE RECEIVED ON: SEP/2013
     Route: 058
     Dates: start: 201212
  2. ALLEGRA [Suspect]
     Indication: PRODUCT USED FOR UNKNOWN INDICATION
     Route: 065
  3. LEVAQUIN [Concomitant]
  4. ZYRTEC [Concomitant]
  5. AZITHROMYCIN [Concomitant]
     Route: 065
  6. NASONEX [Concomitant]
     Dosage: 2 SPRAYS EACH NOTRIL DAILY
     Route: 065
  7. XOPENEX [Concomitant]
     Route: 065
  8. NASONEX [Concomitant]
     Dosage: 2 SPRAYS EACH NOSTRIL
     Route: 065
  9. ALLOPURINOL [Concomitant]
     Route: 065
  10. FUROSEMIDE [Concomitant]
     Route: 048
  11. COLCRYS [Concomitant]
     Route: 048
  12. OMEPRAZOLE [Concomitant]
     Route: 048
  13. LANTUS [Concomitant]
     Dosage: 70 UNIT AT BEDTIME
     Route: 065
  14. PREDNISONE [Concomitant]

REACTIONS (11)
  - Bronchitis [Not Recovered/Not Resolved]
  - Heart rate increased [Unknown]
  - Blood glucose increased [Unknown]
  - Pneumonia [Not Recovered/Not Resolved]
  - Back pain [Recovered/Resolved]
  - Dyspnoea [Unknown]
  - Wheezing [Unknown]
  - Nasal congestion [Unknown]
  - Rhinorrhoea [Unknown]
  - Rhinorrhoea [Unknown]
  - Oedema peripheral [Unknown]
